FAERS Safety Report 13670232 (Version 1)
Quarter: 2017Q2

REPORT INFORMATION
  Report Type: Spontaneous
  Country: FR (occurrence: FR)
  Receive Date: 20170620
  Receipt Date: 20170620
  Transmission Date: 20170830
  Serious: Yes (Hospitalization)
  Sender: FDA-Public Use
  Company Number: FR-ASTRAZENECA-2017SE63732

PATIENT
  Age: 16249 Day
  Sex: Male

DRUGS (23)
  1. CACIT D3 [Concomitant]
     Active Substance: CALCIUM\CHOLECALCIFEROL
     Dosage: STRENGTH 1G/880UI, ONE DAILY
  2. TAREG [Concomitant]
     Active Substance: VALSARTAN
  3. EBASTINE [Concomitant]
     Active Substance: EBASTINE
     Dosage: 1/DAY
  4. COUMADINE [Concomitant]
     Active Substance: WARFARIN SODIUM
  5. VALIUM [Concomitant]
     Active Substance: DIAZEPAM
  6. TIORFAN [Suspect]
     Active Substance: RACECADOTRIL
     Indication: DIARRHOEA
     Route: 048
     Dates: start: 20170506, end: 20170516
  7. OXYCODONE [Suspect]
     Active Substance: OXYCODONE
     Indication: INTERVERTEBRAL DISCITIS
     Route: 048
     Dates: start: 20170507
  8. SALAZOPYRINE [Suspect]
     Active Substance: SULFASALAZINE
     Indication: PSORIATIC ARTHROPATHY
     Route: 048
     Dates: start: 20170507, end: 20170514
  9. INEXIUM [Suspect]
     Active Substance: ESOMEPRAZOLE
     Route: 048
     Dates: start: 20170505
  10. KARDEGIC [Suspect]
     Active Substance: ASPIRIN LYSINE
     Indication: CARDIOVASCULAR EVENT PROPHYLAXIS
     Route: 048
     Dates: start: 20170507, end: 20170514
  11. OXAZEPAM. [Suspect]
     Active Substance: OXAZEPAM
     Indication: ANXIETY
     Route: 048
     Dates: start: 201705
  12. HYDROCORTISONE. [Concomitant]
     Active Substance: HYDROCORTISONE
     Dosage: 30 MG-20 MG-0
  13. PAROXETINE. [Suspect]
     Active Substance: PAROXETINE
     Indication: DEPRESSION
     Route: 048
     Dates: start: 20170508
  14. SUBUTEX [Concomitant]
     Active Substance: BUPRENORPHINE HYDROCHLORIDE
  15. PARACETAMOL [Concomitant]
     Active Substance: ACETAMINOPHEN
  16. CEFAZOLIN [Suspect]
     Active Substance: CEFAZOLIN
     Indication: INTERVERTEBRAL DISCITIS
     Dosage: MYLAN 8GM DAILY
     Route: 042
     Dates: start: 20170503, end: 20170515
  17. SPECIAFOLDINE [Concomitant]
     Active Substance: FOLIC ACID
  18. TERCIAN [Concomitant]
     Active Substance: CYAMEMAZINE
     Dosage: 3 DROPS THREE TIMES A DAY
     Route: 048
  19. LEVOFLOXACIN. [Suspect]
     Active Substance: LEVOFLOXACIN
     Indication: INTERVERTEBRAL DISCITIS
     Dosage: ARROW 1GM PER DAILY
     Route: 048
     Dates: start: 20170503
  20. NIQUITIN [Suspect]
     Active Substance: NICOTINE
     Indication: EX-TOBACCO USER
     Dosage: STRENGTH 14 MG/24H, 1 DF DAILY
     Route: 062
     Dates: start: 20170508
  21. FORLAX [Concomitant]
     Active Substance: POLYETHYLENE GLYCOL 4000
     Dosage: 2-0-0
  22. FORTIMEL [Concomitant]
     Active Substance: DIETARY SUPPLEMENT
     Dosage: 6 BOTTLES/DAY
  23. INIPOMP [Concomitant]
     Active Substance: PANTOPRAZOLE SODIUM

REACTIONS (1)
  - Renal failure [Not Recovered/Not Resolved]

NARRATIVE: CASE EVENT DATE: 20170510
